FAERS Safety Report 6511378-7 (Version None)
Quarter: 2009Q4

REPORT INFORMATION
  Report Type: 
  Country: None (occurrence: None)
  Receive Date: 20091222
  Receipt Date: 20090309
  Transmission Date: 20100525
  Serious: No
  Sender: FDA-Public Use
  Company Number: US-ASTRAZENECA-2009UW06109

PATIENT
  Age: 35 Year
  Sex: Male
  Weight: 152 kg

DRUGS (6)
  1. CRESTOR [Suspect]
     Route: 048
     Dates: start: 20090305
  2. GEMFIBROZIL [Concomitant]
  3. LISINOPRIL [Concomitant]
  4. POTASSIUM CHLORIDE [Concomitant]
  5. TENACH [Concomitant]
  6. LASIX [Concomitant]

REACTIONS (2)
  - DECREASED APPETITE [None]
  - FEELING COLD [None]
